FAERS Safety Report 21875034 (Version 6)
Quarter: 2023Q2

REPORT INFORMATION
  Report Type: Report from Study
  Country: ES (occurrence: ES)
  Receive Date: 20230117
  Receipt Date: 20230509
  Transmission Date: 20230721
  Serious: Yes (Other)
  Sender: FDA-Public Use
  Company Number: ES-ABBVIE-4272445

PATIENT
  Age: 65 Year
  Sex: Male
  Weight: 96 kg

DRUGS (2)
  1. CARBIDOPA\LEVODOPA [Suspect]
     Active Substance: CARBIDOPA\LEVODOPA
     Indication: Parkinson^s disease
     Route: 050
     Dates: start: 20221214, end: 20230111
  2. CARBIDOPA\LEVODOPA [Suspect]
     Active Substance: CARBIDOPA\LEVODOPA
     Dosage: DOSES WERE INCREASED?LAST ADMIN DATE JAN 2023
     Route: 050
     Dates: start: 20230111

REACTIONS (10)
  - General physical health deterioration [Not Recovered/Not Resolved]
  - Polyneuropathy [Recovered/Resolved]
  - Unevaluable event [Unknown]
  - Speech disorder [Unknown]
  - Malaise [Unknown]
  - Drug ineffective [Unknown]
  - Hypertension [Not Recovered/Not Resolved]
  - Balance disorder [Unknown]
  - Paraesthesia [Unknown]
  - Unevaluable event [Not Recovered/Not Resolved]

NARRATIVE: CASE EVENT DATE: 20221201
